FAERS Safety Report 6201626-5 (Version None)
Quarter: 2009Q2

REPORT INFORMATION
  Report Type: 
  Country: None (occurrence: None)
  Receive Date: 20090519
  Receipt Date: 20090507
  Transmission Date: 20091009
  Serious: Yes (Other)
  Sender: FDA-Public Use
  Company Number: AEUSA200900152

PATIENT
  Age: 5 Year
  Sex: Male

DRUGS (1)
  1. GAMUNEX [Suspect]
     Indication: PARALYSIS
     Dosage: 8.3 GM; QD; IV
     Route: 042
     Dates: start: 20060930, end: 20061003

REACTIONS (1)
  - WEST NILE VIRUS TEST POSITIVE [None]
